FAERS Safety Report 9617134 (Version 2)
Quarter: 2013Q4

REPORT INFORMATION
  Report Type: Spontaneous
  Country: US (occurrence: US)
  Receive Date: 20131011
  Receipt Date: 20131011
  Transmission Date: 20140711
  Serious: No
  Sender: FDA-Public Use
  Company Number: US-AMGEN-USASP2013063574

PATIENT
  Sex: Female
  Weight: 105.22 kg

DRUGS (1)
  1. XGEVA [Suspect]
     Indication: PROPHYLAXIS
     Dosage: UNK
     Route: 030

REACTIONS (4)
  - Pain in extremity [Unknown]
  - Palpitations [Unknown]
  - Wrong technique in drug usage process [Unknown]
  - Injection site haemorrhage [Unknown]
